FAERS Safety Report 8291586 (Version 2)
Quarter: 2013Q1

REPORT INFORMATION
  Report Type: Spontaneous
  Country: JP (occurrence: JP)
  Receive Date: 20111214
  Receipt Date: 20130122
  Transmission Date: 20140127
  Serious: Yes (Hospitalization)
  Sender: FDA-Public Use
  Company Number: JP-GLAXOSMITHKLINE-B0767993A

PATIENT
  Age: 56 Year
  Sex: Male
  Weight: 62 kg

DRUGS (12)
  1. IMURAN [Suspect]
     Indication: PRODUCT USED FOR UNKNOWN INDICATION
     Dosage: 100MG PER DAY
     Route: 048
     Dates: end: 20111107
  2. IMURAN [Suspect]
     Indication: PRODUCT USED FOR UNKNOWN INDICATION
     Dosage: 50MG PER DAY
     Route: 048
     Dates: start: 20111108
  3. ZYLORIC [Suspect]
     Indication: PRODUCT USED FOR UNKNOWN INDICATION
     Dosage: 100MG PER DAY
     Route: 048
     Dates: end: 20111028
  4. BAKTAR [Suspect]
     Indication: PRODUCT USED FOR UNKNOWN INDICATION
     Dosage: 1IUAX PER DAY
     Route: 048
     Dates: end: 20111028
  5. ITRIZOLE [Suspect]
     Dosage: 200MG PER DAY
     Route: 048
  6. ITRIZOLE [Suspect]
     Dosage: 100MG PER DAY
     Route: 048
  7. TAKEPRON [Concomitant]
     Route: 048
  8. PREDNISOLONE [Concomitant]
     Route: 048
  9. MICARDIS [Concomitant]
     Route: 048
  10. URSO [Concomitant]
     Route: 048
  11. MUCODYNE [Concomitant]
     Route: 048
  12. VASOLAN [Concomitant]
     Route: 065

REACTIONS (5)
  - Anaemia megaloblastic [Recovering/Resolving]
  - Anaemia [Recovering/Resolving]
  - Bone marrow failure [Unknown]
  - Drug level increased [Recovering/Resolving]
  - Drug interaction [Unknown]
